FAERS Safety Report 17551375 (Version 1)
Quarter: 2020Q1

REPORT INFORMATION
  Report Type: Spontaneous
  Country: US (occurrence: US)
  Receive Date: 20200317
  Receipt Date: 20200317
  Transmission Date: 20200409
  Serious: Yes (Hospitalization)
  Sender: FDA-Public Use
  Company Number: None

PATIENT
  Age: 20 Year
  Sex: Female

DRUGS (9)
  1. LEVOTHYROXIN [Concomitant]
     Active Substance: LEVOTHYROXINE
  2. SPIRONOLACT [Concomitant]
     Active Substance: SPIRONOLACTONE
  3. TRIAMCINOLON [Concomitant]
  4. METRONIDAZOL [Concomitant]
     Active Substance: METRONIDAZOLE
  5. CHLOR GLUC [Concomitant]
  6. RIFAMPIN. [Concomitant]
     Active Substance: RIFAMPIN
  7. HUMIRA [Suspect]
     Active Substance: ADALIMUMAB
     Indication: HIDRADENITIS
     Dosage: ?          OTHER FREQUENCY:DAY 1;?
     Route: 058
     Dates: start: 20200127
  8. CLINDAMYCIN. [Concomitant]
     Active Substance: CLINDAMYCIN
  9. TRI-LO TAB SPRINTEC [Concomitant]

REACTIONS (1)
  - Condition aggravated [None]

NARRATIVE: CASE EVENT DATE: 20200201
